FAERS Safety Report 7692798-4 (Version None)
Quarter: 2011Q3

REPORT INFORMATION
  Report Type: 
  Country: None (occurrence: None)
  Receive Date: 20110819
  Receipt Date: 20110810
  Transmission Date: 20111222
  Serious: Yes (Other)
  Sender: FDA-Public Use
  Company Number: NL-JNJFOC-20110804443

PATIENT
  Age: 3 Decade
  Sex: Male

DRUGS (3)
  1. QUETIAPINE [Suspect]
     Indication: IMPULSE-CONTROL DISORDER
     Route: 065
     Dates: start: 20110804
  2. INVEGA [Suspect]
     Indication: IMPULSE-CONTROL DISORDER
     Route: 048
     Dates: start: 20110804
  3. QUETIAPINE [Suspect]
     Route: 065

REACTIONS (2)
  - PALPITATIONS [None]
  - CHEST PAIN [None]
